FAERS Safety Report 5001743-1 (Version None)
Quarter: 2006Q2

REPORT INFORMATION
  Report Type: 
  Country: None (occurrence: None)
  Receive Date: 20060512
  Receipt Date: 20060512
  Transmission Date: 20061013
  Serious: No
  Sender: FDA-Public Use
  Company Number: None

PATIENT
  Sex: Female

DRUGS (1)
  1. LYRICA [Suspect]
     Dates: start: 20060401, end: 20060501

REACTIONS (2)
  - ADVERSE EVENT [None]
  - INCORRECT DOSE ADMINISTERED [None]
